FAERS Safety Report 9900642 (Version 1)
Quarter: 2014Q1

REPORT INFORMATION
  Report Type: Spontaneous
  Country: AU (occurrence: AU)
  Receive Date: 20140217
  Receipt Date: 20140217
  Transmission Date: 20141002
  Serious: Yes (Hospitalization)
  Sender: FDA-Public Use
  Company Number: AU-ROCHE-1348406

PATIENT
  Age: 74 Year
  Sex: Male
  Weight: 80.6 kg

DRUGS (9)
  1. CEFTRIAXONE [Suspect]
     Indication: PRODUCT USED FOR UNKNOWN INDICATION
     Route: 042
     Dates: start: 20131204, end: 20131207
  2. CEPHALEXIN [Suspect]
     Indication: PRODUCT USED FOR UNKNOWN INDICATION
     Route: 048
     Dates: end: 20131209
  3. AZITHROMYCIN [Concomitant]
     Route: 042
     Dates: start: 20131204, end: 20131207
  4. BENZTROPINE MESYLATE [Concomitant]
     Route: 048
     Dates: start: 20131203
  5. BISOLVON [Concomitant]
     Route: 048
     Dates: start: 20131206
  6. ESOMEPRAZOLE MAGNESIUM TRIHYDRATE [Concomitant]
     Route: 048
     Dates: start: 20131203
  7. PREDNISOLONE [Concomitant]
     Route: 065
     Dates: start: 20131203
  8. QUETIAPINE [Concomitant]
     Route: 048
     Dates: start: 20131203
  9. SERETIDE [Concomitant]
     Dosage: SERETIDE 250/25 MDI
     Route: 065
     Dates: start: 20131204

REACTIONS (1)
  - Tubulointerstitial nephritis [Recovering/Resolving]
